FAERS Safety Report 4840385-5 (Version None)
Quarter: 2005Q4

REPORT INFORMATION
  Report Type: 
  Country: None (occurrence: None)
  Receive Date: 20051031
  Receipt Date: 20050124
  Transmission Date: 20060501
  Serious: Yes (Other)
  Sender: FDA-Public Use
  Company Number: PHEH2005US01313

PATIENT
  Sex: Female

DRUGS (2)
  1. LESCOL XL [Suspect]
     Indication: HYPERCHOLESTEROLAEMIA
     Dosage: 80 MG,QD
     Dates: end: 20050124
  2. CALCIUM CHANNEL BLOCKERS(NO INGREDIENTS/SUBSTANCES) [Suspect]

REACTIONS (1)
  - PARAESTHESIA [None]
